FAERS Safety Report 5231790-6 (Version None)
Quarter: 2007Q1

REPORT INFORMATION
  Report Type: 
  Country: None (occurrence: None)
  Receive Date: 20070206
  Receipt Date: 20070126
  Transmission Date: 20070707
  Serious: Yes (Other)
  Sender: FDA-Public Use
  Company Number: US-PFIZER INC-2007008248

PATIENT
  Sex: Female
  Weight: 59 kg

DRUGS (3)
  1. DOSTINEX [Suspect]
     Indication: PROLACTINOMA
  2. ZOLOFT [Concomitant]
  3. LEVOXYL [Concomitant]

REACTIONS (2)
  - CARDIAC FLUTTER [None]
  - RESPIRATORY RATE INCREASED [None]
